FAERS Safety Report 16199029 (Version 3)
Quarter: 2019Q2

REPORT INFORMATION
  Report Type: Spontaneous
  Country: JP (occurrence: JP)
  Receive Date: 20190415
  Receipt Date: 20190529
  Transmission Date: 20190711
  Serious: Yes (Hospitalization, Other)
  Sender: FDA-Public Use
  Company Number: JP-JNJFOC-20190416258

PATIENT
  Age: 78 Year
  Sex: Male

DRUGS (8)
  1. XARELTO [Suspect]
     Active Substance: RIVAROXABAN
     Indication: PRODUCT USED FOR UNKNOWN INDICATION
     Route: 048
  2. BEPRICOR [Concomitant]
     Active Substance: BEPRIDIL
     Route: 065
  3. RABEPRAZOLE NA [Concomitant]
     Active Substance: RABEPRAZOLE SODIUM
     Route: 065
  4. EPERISONE HYDROCHLORIDE [Concomitant]
     Active Substance: EPERISONE HYDROCHLORIDE
     Route: 065
  5. PREDNISOLONE. [Concomitant]
     Active Substance: PREDNISOLONE
     Route: 065
  6. SULPIRIDE [Concomitant]
     Active Substance: SULPIRIDE
     Route: 065
  7. BENZBROMARONE [Concomitant]
     Active Substance: BENZBROMARONE
     Route: 065
  8. URSODEOXYCHOLIC ACID [Concomitant]
     Active Substance: URSODIOL
     Route: 065

REACTIONS (4)
  - Prostate cancer [Unknown]
  - Cerebral infarction [Unknown]
  - Spinal compression fracture [Unknown]
  - Coagulation test abnormal [Unknown]

NARRATIVE: CASE EVENT DATE: 201902
